FAERS Safety Report 8302100-2 (Version None)
Quarter: 2012Q2

REPORT INFORMATION
  Report Type: 
  Country: None (occurrence: None)
  Receive Date: 20120420
  Receipt Date: 20120418
  Transmission Date: 20120825
  Serious: Yes (Death, Hospitalization, Other)
  Sender: FDA-Public Use
  Company Number: JP-B.I. PHARMACEUTICALS,INC./RIDGEFIELD-2012-BP-04903NB

PATIENT
  Age: 91 Year
  Sex: Female

DRUGS (6)
  1. MIRAPEX [Suspect]
     Indication: MUSCLE RIGIDITY
     Route: 048
     Dates: start: 20120104, end: 20120125
  2. MIRAPEX [Suspect]
     Dosage: 0.375 MG
     Route: 048
     Dates: start: 20120126, end: 20120224
  3. MIRAPEX [Suspect]
     Route: 048
     Dates: start: 20120225, end: 20120303
  4. LASIX [Concomitant]
     Indication: HYPERTENSION
     Dosage: 20 MG
     Route: 048
  5. ASPIRIN [Concomitant]
     Indication: CEREBRAL INFARCTION
     Dosage: 100 MG
     Route: 048
  6. LEVOTHYROXINE SODIUM [Concomitant]
     Indication: HYPOTHYROIDISM
     Dosage: 25 MG
     Route: 048

REACTIONS (5)
  - DEHYDRATION [None]
  - NIGHT SWEATS [None]
  - ALTERED STATE OF CONSCIOUSNESS [None]
  - RESPIRATORY DEPRESSION [None]
  - DIARRHOEA [None]
